FAERS Safety Report 20920145 (Version 1)
Quarter: 2022Q2

REPORT INFORMATION
  Report Type: Spontaneous
  Country: None (occurrence: US)
  Receive Date: 20220606
  Receipt Date: 20220606
  Transmission Date: 20220721
  Serious: No
  Sender: FDA-Public Use
  Company Number: US-Intersect Ent, Inc.-2129508

PATIENT
  Age: 56 Year
  Sex: Male

DRUGS (1)
  1. SINUVA [Suspect]
     Active Substance: MOMETASONE FUROATE
     Indication: Nasal polyps
     Route: 006
     Dates: start: 20210602, end: 20210804

REACTIONS (4)
  - Granuloma [Recovered/Resolved with Sequelae]
  - Nasal adhesions [Unknown]
  - Nasal inflammation [Recovered/Resolved with Sequelae]
  - Nasal crusting [Recovered/Resolved with Sequelae]

NARRATIVE: CASE EVENT DATE: 20210804
